FAERS Safety Report 16386730 (Version 1)
Quarter: 2019Q2

REPORT INFORMATION
  Report Type: Spontaneous
  Country: FR (occurrence: FR)
  Receive Date: 20190604
  Receipt Date: 20190604
  Transmission Date: 20190711
  Serious: Yes (Hospitalization, Other)
  Sender: FDA-Public Use
  Company Number: FR-AUROBINDO-AUR-APL-2019-029656

PATIENT

DRUGS (1)
  1. MEROPENEM ARROW [Suspect]
     Active Substance: MEROPENEM
     Indication: CNS VENTRICULITIS
     Dosage: 6 GRAM, DAILY
     Route: 042
     Dates: start: 20190503, end: 20190503

REACTIONS (3)
  - Accidental overdose [Recovered/Resolved]
  - Confusional state [Recovered/Resolved]
  - Partial seizures [Recovered/Resolved]

NARRATIVE: CASE EVENT DATE: 20190503
